FAERS Safety Report 23469810 (Version 1)
Quarter: 2024Q1

REPORT INFORMATION
  Report Type: Spontaneous
  Country: US (occurrence: None)
  Receive Date: 20240202
  Receipt Date: 20240202
  Transmission Date: 20240410
  Serious: Yes (Hospitalization)
  Sender: FDA-Public Use
  Company Number: US-ROCHE-3500494

PATIENT
  Sex: Female
  Weight: 118.04 kg

DRUGS (22)
  1. ACTEMRA [Suspect]
     Active Substance: TOCILIZUMAB
     Indication: Rheumatoid arthritis
     Dosage: STRENGTH: 162MG/0.9ML
     Route: 058
     Dates: start: 202302
  2. ACTEMRA [Suspect]
     Active Substance: TOCILIZUMAB
  3. ACTEMRA [Suspect]
     Active Substance: TOCILIZUMAB
     Route: 058
     Dates: start: 202212
  4. ACTEMRA [Suspect]
     Active Substance: TOCILIZUMAB
  5. ANASTROZOLE [Suspect]
     Active Substance: ANASTROZOLE
     Indication: Product used for unknown indication
     Route: 065
     Dates: start: 2018, end: 202306
  6. VERZENIO [Concomitant]
     Active Substance: ABEMACICLIB
     Route: 048
  7. EXEMESTANE [Concomitant]
     Active Substance: EXEMESTANE
     Route: 048
  8. ZOFRAN [Concomitant]
     Active Substance: ONDANSETRON HYDROCHLORIDE
     Indication: Nausea
     Dosage: AS NEEDED
     Route: 048
     Dates: start: 2017
  9. PREGABALIN [Concomitant]
     Active Substance: PREGABALIN
     Indication: Fibromyalgia
     Dosage: AT NIGHT
     Route: 048
     Dates: start: 202308
  10. PREGABALIN [Concomitant]
     Active Substance: PREGABALIN
     Indication: Pain
     Route: 048
     Dates: start: 202302, end: 202308
  11. RESTASIS [Concomitant]
     Active Substance: CYCLOSPORINE
     Indication: Dry eye
     Dosage: ONE DROP IN EACH EYE
     Route: 047
  12. DULOXETINE [Concomitant]
     Active Substance: DULOXETINE
     Indication: Pain
     Route: 048
  13. DULOXETINE [Concomitant]
     Active Substance: DULOXETINE
     Indication: Inflammation
  14. FOLIC ACID [Concomitant]
     Active Substance: FOLIC ACID
     Indication: Nausea
     Route: 048
     Dates: start: 2017
  15. GOSERELIN [Concomitant]
     Active Substance: GOSERELIN
     Indication: Menopause
     Route: 058
     Dates: start: 2018
  16. FLEXERIL [Concomitant]
     Active Substance: CYCLOBENZAPRINE HYDROCHLORIDE
     Indication: Muscle spasms
     Dosage: AS NEEDED
     Route: 048
     Dates: start: 2018
  17. MINOCYCLINE [Concomitant]
     Active Substance: MINOCYCLINE HYDROCHLORIDE
     Indication: Cellulitis
     Dates: end: 202312
  18. ORENCIA [Concomitant]
     Active Substance: ABATACEPT
     Route: 058
     Dates: start: 202008
  19. TYLENOL ARTHRITIS PAIN [Concomitant]
     Active Substance: ACETAMINOPHEN
     Indication: Pain
     Dosage: 3 TABLETS OF 625MG EVERY NIGHT
     Route: 048
  20. RASUVO [Concomitant]
     Active Substance: METHOTREXATE SODIUM
     Indication: Rheumatoid arthritis
     Route: 058
  21. PREDNISONE [Concomitant]
     Active Substance: PREDNISONE
  22. XELJANZ [Concomitant]
     Active Substance: TOFACITINIB CITRATE

REACTIONS (11)
  - Heart rate increased [Not Recovered/Not Resolved]
  - Dizziness [Recovering/Resolving]
  - Dizziness [Recovering/Resolving]
  - Cellulitis [Recovered/Resolved]
  - Nasopharyngitis [Recovered/Resolved]
  - Dyskinesia [Unknown]
  - Pain [Recovering/Resolving]
  - Wrong technique in product usage process [Unknown]
  - Product packaging quantity issue [Unknown]
  - Product complaint [Unknown]
  - Device defective [Unknown]

NARRATIVE: CASE EVENT DATE: 20230101
